FAERS Safety Report 7526199-6 (Version None)
Quarter: 2011Q2

REPORT INFORMATION
  Report Type: 
  Country: None (occurrence: None)
  Receive Date: 20110603
  Receipt Date: 20110603
  Transmission Date: 20111010
  Serious: Yes (Life-Threatening, Hospitalization)
  Sender: FDA-Public Use
  Company Number: None

PATIENT
  Age: 17 Year
  Sex: Male
  Weight: 50 kg

DRUGS (1)
  1. ABILIFY [Suspect]
     Indication: SCHIZOPHRENIA
     Dosage: UNKNOWN GREATER THAN 6 MONTHS

REACTIONS (4)
  - SUICIDAL IDEATION [None]
  - DIET REFUSAL [None]
  - DIABETIC KETOACIDOSIS [None]
  - TREATMENT NONCOMPLIANCE [None]
